FAERS Safety Report 8003827-2 (Version None)
Quarter: 2011Q4

REPORT INFORMATION
  Report Type: 
  Country: None (occurrence: None)
  Receive Date: 20111222
  Receipt Date: 20111215
  Transmission Date: 20120403
  Serious: Yes (Hospitalization, Other)
  Sender: FDA-Public Use
  Company Number: US-ABBOTT-10P-163-0659279-00

PATIENT
  Sex: Male
  Weight: 104.42 kg

DRUGS (12)
  1. LISINOPRIL [Concomitant]
     Indication: PRODUCT USED FOR UNKNOWN INDICATION
  2. SYNTHROID [Concomitant]
     Indication: PRODUCT USED FOR UNKNOWN INDICATION
  3. PREDNISONE TAB [Concomitant]
     Indication: PRODUCT USED FOR UNKNOWN INDICATION
     Dosage: FOR 3 DAYS
  4. PROTONIX [Concomitant]
     Indication: PRODUCT USED FOR UNKNOWN INDICATION
  5. HUMIRA [Suspect]
     Indication: OSTEOARTHRITIS
  6. BACTRIM DS [Concomitant]
     Indication: ANTIFUNGAL PROPHYLAXIS
     Dosage: WHILE ON CHRONIC PREDNISONE
  7. HUMIRA [Suspect]
     Indication: RHEUMATOID ARTHRITIS
     Route: 058
     Dates: start: 20050101, end: 20060725
  8. MULTI-VITAMIN [Concomitant]
     Indication: PRODUCT USED FOR UNKNOWN INDICATION
  9. PREDNISONE TAB [Concomitant]
     Dosage: FOR 5 DAYS AND THEN STOP
  10. PREDNISONE TAB [Concomitant]
     Dosage: FOR 5 DAYS
  11. LORATADINE [Concomitant]
     Indication: PRODUCT USED FOR UNKNOWN INDICATION
  12. SINGULAIR [Concomitant]
     Indication: PRODUCT USED FOR UNKNOWN INDICATION

REACTIONS (38)
  - DEEP VEIN THROMBOSIS [None]
  - PANCYTOPENIA [None]
  - LYMPHOMA [None]
  - DIASTOLIC DYSFUNCTION [None]
  - JOINT SWELLING [None]
  - SCAN ADRENAL GLAND ABNORMAL [None]
  - TRANSAMINASES INCREASED [None]
  - HISTOPLASMOSIS DISSEMINATED [None]
  - GASTROINTESTINAL ULCER [None]
  - SYNCOPE [None]
  - DIARRHOEA [None]
  - MOUTH ULCERATION [None]
  - SPLENOMEGALY [None]
  - HYPOXIA [None]
  - PULMONARY EMBOLISM [None]
  - HYPOTHYROIDISM [None]
  - SEPTIC SHOCK [None]
  - WEIGHT DECREASED [None]
  - GASTROINTESTINAL MUCOSAL DISORDER [None]
  - CHILLS [None]
  - LOSS OF CONSCIOUSNESS [None]
  - DYSPNOEA [None]
  - NIGHT SWEATS [None]
  - CYTOMEGALOVIRUS INFECTION [None]
  - ULCER [None]
  - PYREXIA [None]
  - HYPERSPLENISM [None]
  - LYMPHADENOPATHY [None]
  - ARRHYTHMIA [None]
  - HYPERCOAGULATION [None]
  - DISSEMINATED INTRAVASCULAR COAGULATION [None]
  - HAEMORRHAGE [None]
  - GASTROINTESTINAL HAEMORRHAGE [None]
  - THROMBOCYTOPENIA [None]
  - CHRONIC OBSTRUCTIVE PULMONARY DISEASE [None]
  - IMMUNODEFICIENCY [None]
  - MOBILITY DECREASED [None]
  - TUBERCULOSIS [None]
